FAERS Safety Report 6441527-0 (Version None)
Quarter: 2009Q4

REPORT INFORMATION
  Report Type: 
  Country: None (occurrence: None)
  Receive Date: 20091116
  Receipt Date: 20091106
  Transmission Date: 20100525
  Serious: Yes (Other)
  Sender: FDA-Public Use
  Company Number: US-BAXTER-2009BH017112

PATIENT

DRUGS (3)
  1. GAMMAGARD LIQUID [Suspect]
     Indication: DRUG USE FOR UNKNOWN INDICATION
     Route: 065
  2. GAMMAGARD LIQUID [Suspect]
     Route: 065
  3. GAMMAGARD LIQUID [Suspect]
     Route: 065

REACTIONS (1)
  - HAEMOLYSIS [None]
